FAERS Safety Report 9682534 (Version 1)
Quarter: 2013Q4

REPORT INFORMATION
  Report Type: Spontaneous
  Country: US (occurrence: US)
  Receive Date: 20131112
  Receipt Date: 20131112
  Transmission Date: 20140711
  Serious: Yes (Other)
  Sender: FDA-Public Use
  Company Number: US-SUN PHARMACEUTICAL INDUSTRIES LTD-2013SUN04994

PATIENT
  Age: 58 Year
  Sex: Male

DRUGS (1)
  1. LITHIUM CARBONATE TABLETS, USP 300MG [Suspect]
     Indication: PRODUCT USED FOR UNKNOWN INDICATION
     Route: 065

REACTIONS (2)
  - Nephropathy [Unknown]
  - Hypothyroidism [Unknown]
